APPROVED DRUG PRODUCT: GABAPENTIN
Active Ingredient: GABAPENTIN
Strength: 800MG
Dosage Form/Route: TABLET;ORAL
Application: A217116 | Product #002 | TE Code: AB1
Applicant: GRANULES INDIA LTD
Approved: Mar 28, 2023 | RLD: No | RS: No | Type: RX